FAERS Safety Report 8273162-6 (Version None)
Quarter: 2012Q2

REPORT INFORMATION
  Report Type: 
  Country: None (occurrence: None)
  Receive Date: 20120411
  Receipt Date: 20120405
  Transmission Date: 20120825
  Serious: Yes (Death)
  Sender: FDA-Public Use
  Company Number: US-CELGENEUS-163-21880-12040631

PATIENT
  Sex: Male

DRUGS (2)
  1. FOLIC ACID [Concomitant]
     Route: 065
  2. REVLIMID [Suspect]
     Dosage: 10 MILLIGRAM
     Route: 048
     Dates: start: 20110922, end: 20110101

REACTIONS (1)
  - DEATH [None]
